FAERS Safety Report 8966869 (Version 1)
Quarter: 2012Q4

REPORT INFORMATION
  Report Type: Report from Study
  Country: IT (occurrence: IT)
  Receive Date: 20121214
  Receipt Date: 20121214
  Transmission Date: 20130627
  Serious: Yes (Hospitalization)
  Sender: FDA-Public Use
  Company Number: IT-BAXTER-2012BAX027247

PATIENT
  Age: 74 Year
  Sex: Female
  Weight: 55 kg

DRUGS (3)
  1. ENDOXAN BAXTER [Suspect]
     Indication: WALDENSTROM^S MACROGLOBULINEMIA
     Route: 042
     Dates: start: 20080709, end: 20080711
  2. RITUXIMAB [Suspect]
     Indication: DRUG USE FOR UNKNOWN INDICATION
     Route: 042
     Dates: start: 20080708, end: 20080708
  3. FLUDARABINE [Suspect]
     Indication: DRUG USE FOR UNKNOWN INDICATION
     Route: 042
     Dates: start: 20080709, end: 20080711

REACTIONS (3)
  - Sepsis [Recovered/Resolved]
  - Pleural effusion [Recovered/Resolved]
  - Respiratory distress [Recovered/Resolved]
